FAERS Safety Report 13067339 (Version 3)
Quarter: 2017Q1

REPORT INFORMATION
  Report Type: Spontaneous
  Country: US (occurrence: US)
  Receive Date: 20161228
  Receipt Date: 20170124
  Transmission Date: 20170428
  Serious: No
  Sender: FDA-Public Use
  Company Number: US-ASTRAZENECA-2016SF30904

PATIENT
  Age: 63 Year
  Sex: Male
  Weight: 104.3 kg

DRUGS (3)
  1. BYDUREON [Suspect]
     Active Substance: EXENATIDE
     Indication: TYPE 2 DIABETES MELLITUS
     Route: 058
     Dates: start: 20161111
  2. KLONOPIN [Concomitant]
     Active Substance: CLONAZEPAM
  3. PAINKILLER [Concomitant]

REACTIONS (13)
  - Drug dose omission [Recovered/Resolved]
  - Sleep disorder [Unknown]
  - Intentional product misuse [Recovered/Resolved]
  - Injection site haemorrhage [Unknown]
  - Fatigue [Recovering/Resolving]
  - Pain [Unknown]
  - Injection site injury [Recovered/Resolved]
  - Blood glucose increased [Unknown]
  - Injection site pain [Recovered/Resolved]
  - Asthenopia [Unknown]
  - Intentional product use issue [Recovered/Resolved]
  - Needle issue [Recovered/Resolved]
  - Device issue [Unknown]

NARRATIVE: CASE EVENT DATE: 2016
